FAERS Safety Report 17425745 (Version 2)
Quarter: 2020Q1

REPORT INFORMATION
  Report Type: Spontaneous
  Country: ZA (occurrence: ZA)
  Receive Date: 20200217
  Receipt Date: 20200221
  Transmission Date: 20200409
  Serious: Yes (Hospitalization, Other)
  Sender: FDA-Public Use
  Company Number: ZA-TAKEDA-2020TEU001754

PATIENT
  Age: 19 Year
  Sex: Male

DRUGS (2)
  1. PROCYDIN [Suspect]
     Active Substance: CYPROHEPTADINE HYDROCHLORIDE
     Indication: SUICIDE ATTEMPT
     Dosage: UNK
     Route: 065
  2. COLCHICINE. [Suspect]
     Active Substance: COLCHICINE
     Indication: SUICIDE ATTEMPT
     Dosage: 0.4 MILLIGRAM/KILOGRAM
     Route: 065

REACTIONS (3)
  - Multiple organ dysfunction syndrome [Recovering/Resolving]
  - Overdose [Unknown]
  - Toxicity to various agents [Unknown]
